FAERS Safety Report 9644925 (Version 1)
Quarter: 2013Q4

REPORT INFORMATION
  Report Type: Spontaneous
  Country: US (occurrence: US)
  Receive Date: 20131025
  Receipt Date: 20131025
  Transmission Date: 20140711
  Serious: No
  Sender: FDA-Public Use
  Company Number: US-PFIZER INC-2013306179

PATIENT
  Age: 65 Year
  Sex: Female
  Weight: 86.62 kg

DRUGS (7)
  1. CHANTIX [Suspect]
     Indication: SMOKING CESSATION THERAPY
     Dosage: UNK, DAILY
     Dates: start: 20131003
  2. ADVAIR DISKUS [Concomitant]
     Indication: ASTHMA
     Dosage: 250/50 MCG (TWO PUFFS), DAILY
  3. SPIRIVA [Concomitant]
     Dosage: UNK, DAILY
  4. LISINOPRIL [Concomitant]
     Indication: HYPERTENSION
     Dosage: 20 MG, DAILY
  5. HYDROCHLOROTHIAZIDE [Concomitant]
     Dosage: 25 MG, DAILY
  6. VESICARE [Concomitant]
     Indication: BLADDER DISORDER
     Dosage: 10 MG, DAILY
  7. PRAVASTATIN SODIUM [Concomitant]
     Dosage: 40 MG, DAILY

REACTIONS (1)
  - Nausea [Unknown]
